FAERS Safety Report 9952888 (Version 1)
Quarter: 2014Q1

REPORT INFORMATION
  Report Type: Report from Study
  Country: US (occurrence: US)
  Receive Date: 20140304
  Receipt Date: 20140304
  Transmission Date: 20141002
  Serious: No
  Sender: FDA-Public Use
  Company Number: US-ABBVIE-13P-163-1076883-00

PATIENT
  Age: 47 Year
  Sex: Male
  Weight: 102.15 kg

DRUGS (4)
  1. HUMIRA [Suspect]
     Indication: PSORIASIS
     Route: 058
     Dates: start: 20130404, end: 20130404
  2. HUMIRA [Suspect]
     Route: 058
     Dates: start: 20130412
  3. TRIAMCINOLONE [Concomitant]
     Indication: PSORIASIS
  4. CALCIPOTRIENE [Concomitant]
     Indication: PSORIASIS

REACTIONS (5)
  - Fatigue [Recovering/Resolving]
  - Confusional state [Recovered/Resolved]
  - Joint stiffness [Recovering/Resolving]
  - Hot flush [Recovered/Resolved]
  - Hyperhidrosis [Recovered/Resolved]
